FAERS Safety Report 7384609-1 (Version None)
Quarter: 2011Q1

REPORT INFORMATION
  Report Type: 
  Country: None (occurrence: None)
  Receive Date: 20110330
  Receipt Date: 20110323
  Transmission Date: 20110831
  Serious: Yes (Other)
  Sender: FDA-Public Use
  Company Number: CHPA2011US03643

PATIENT
  Age: 76 Year
  Sex: Female
  Weight: 80.272 kg

DRUGS (9)
  1. MULTI-VITAMINS [Concomitant]
     Dosage: UNK, QD
     Route: 048
  2. ATENOLOL [Concomitant]
     Indication: HYPERTENSION
     Dosage: 12.5 MG, QD
     Route: 048
  3. PLAVIX [Concomitant]
     Indication: BLOOD CHOLESTEROL INCREASED
     Dosage: 75 MG, QD
     Route: 048
  4. LIPOFLAVONOID [Concomitant]
     Indication: EAR DISORDER
     Dosage: UNK, UNK
  5. HYDRALAZINE HCL [Concomitant]
     Indication: HYPERTENSION
     Dosage: 100 MG, BID
     Route: 048
  6. GINGER [Concomitant]
     Dosage: UNK, UNK
     Route: 048
  7. TRANSDERM SCOP [Suspect]
     Indication: BALANCE DISORDER
     Dosage: 1 DF, Q72H
     Route: 062
     Dates: start: 20101125, end: 20101202
  8. SIMVASTATIN [Concomitant]
     Indication: BLOOD CHOLESTEROL INCREASED
     Dosage: 80 MG, QD
     Route: 048
  9. ALENDRONATE SODIUM [Concomitant]
     Indication: BONE DISORDER
     Dosage: 7 MG, QW
     Route: 048

REACTIONS (5)
  - MUSCULOSKELETAL STIFFNESS [None]
  - FEELING ABNORMAL [None]
  - DRUG INEFFECTIVE FOR UNAPPROVED INDICATION [None]
  - RASH [None]
  - GAIT DISTURBANCE [None]
